FAERS Safety Report 24904550 (Version 5)
Quarter: 2025Q1

REPORT INFORMATION
  Report Type: Spontaneous
  Country: CA (occurrence: CA)
  Receive Date: 20250130
  Receipt Date: 20250226
  Transmission Date: 20250409
  Serious: Yes (Hospitalization, Other)
  Sender: CELLTRION
  Company Number: CA-PFIZER INC-202500008954

PATIENT

DRUGS (3)
  1. INFLECTRA [Suspect]
     Active Substance: INFLIXIMAB-DYYB
     Indication: Crohn^s disease
     Route: 042
     Dates: start: 20240215, end: 20240521
  2. INFLECTRA [Suspect]
     Active Substance: INFLIXIMAB-DYYB
     Route: 042
     Dates: start: 20250108
  3. IBUPROFEN [Concomitant]
     Active Substance: IBUPROFEN

REACTIONS (27)
  - Pericardial effusion malignant [Recovering/Resolving]
  - Viral pericarditis [Recovering/Resolving]
  - Cardiomegaly [Unknown]
  - Cardiac tamponade [Recovering/Resolving]
  - Atrial fibrillation [Recovering/Resolving]
  - Tricuspid valve incompetence [Unknown]
  - Emphysematous cystitis [Unknown]
  - Renal injury [Unknown]
  - Enteritis [Unknown]
  - Ileal stenosis [Unknown]
  - Hypokinesia [Unknown]
  - Dyspnoea [Unknown]
  - Chest pain [Unknown]
  - Blood pressure systolic inspiratory decreased [Unknown]
  - Weight decreased [Unknown]
  - Fistula [Unknown]
  - Fistula discharge [Unknown]
  - Influenza like illness [Unknown]
  - Productive cough [Unknown]
  - Purulence [Unknown]
  - Malaise [Unknown]
  - Upper respiratory tract infection [Unknown]
  - Viral infection [Unknown]
  - Drug level below therapeutic [Unknown]
  - Abdominal pain [Recovering/Resolving]
  - Blood creatinine increased [Unknown]
  - Urinary tract infection [Recovered/Resolved]

NARRATIVE: CASE EVENT DATE: 20240101
